FAERS Safety Report 9401416 (Version 1)
Quarter: 2013Q3

REPORT INFORMATION
  Report Type: Spontaneous
  Country: CN (occurrence: CN)
  Receive Date: 20130715
  Receipt Date: 20130715
  Transmission Date: 20140515
  Serious: Yes (Other)
  Sender: FDA-Public Use
  Company Number: CN-BAXTER-2013BAX026368

PATIENT
  Age: 53 Year
  Sex: Female
  Weight: 43 kg

DRUGS (2)
  1. 20% MANNITOL INJECTION [Suspect]
     Indication: JOINT ANKYLOSIS
     Route: 041
     Dates: start: 20110702, end: 20110702
  2. 20% MANNITOL INJECTION [Suspect]
     Indication: CERVICAL MYELOPATHY

REACTIONS (5)
  - Anaphylactic reaction [Recovering/Resolving]
  - Sensation of foreign body [Recovering/Resolving]
  - Cough [Recovering/Resolving]
  - Dysphagia [Recovering/Resolving]
  - Rash pruritic [Recovered/Resolved]
